FAERS Safety Report 21873650 (Version 1)
Quarter: 2023Q1

REPORT INFORMATION
  Report Type: Spontaneous
  Country: US (occurrence: US)
  Receive Date: 20230117
  Receipt Date: 20230117
  Transmission Date: 20230418
  Serious: Yes (Other)
  Sender: FDA-Public Use
  Company Number: US-ALLERGAN-2240579US

PATIENT
  Sex: Male

DRUGS (3)
  1. QULIPTA [Suspect]
     Active Substance: ATOGEPANT
     Indication: Product used for unknown indication
     Dosage: UNK
     Dates: start: 20221102
  2. QULIPTA [Suspect]
     Active Substance: ATOGEPANT
     Dosage: UNK
     Dates: start: 2022
  3. QULIPTA [Suspect]
     Active Substance: ATOGEPANT
     Dosage: UNK
     Dates: start: 202208

REACTIONS (6)
  - Surgery [Unknown]
  - Asthenia [Unknown]
  - Hypoaesthesia [Unknown]
  - Illness [Unknown]
  - Nausea [Unknown]
  - Headache [Unknown]

NARRATIVE: CASE EVENT DATE: 20220101
